FAERS Safety Report 5478107-X (Version None)
Quarter: 2007Q4

REPORT INFORMATION
  Report Type: 
  Country: None (occurrence: None)
  Receive Date: 20071005
  Receipt Date: 20070924
  Transmission Date: 20080405
  Serious: Yes (Other)
  Sender: FDA-Public Use
  Company Number: GB-JNJFOC-20070900720

PATIENT
  Sex: Male
  Weight: 18.2 kg

DRUGS (3)
  1. TOPAMAX [Suspect]
     Route: 065
  2. TOPAMAX [Suspect]
     Indication: EPILEPSY
     Route: 065
  3. VALPROATE SODIUM [Concomitant]
     Indication: DRUG USE FOR UNKNOWN INDICATION
     Route: 065

REACTIONS (8)
  - AGGRESSION [None]
  - CONVULSION [None]
  - DROOLING [None]
  - DRUG PRESCRIBING ERROR [None]
  - EPILEPSY [None]
  - MOOD SWINGS [None]
  - MUSCLE SPASMS [None]
  - RASH [None]
